FAERS Safety Report 24304667 (Version 2)
Quarter: 2024Q4

REPORT INFORMATION
  Report Type: Report from Study
  Country: BE (occurrence: BE)
  Receive Date: 20240910
  Receipt Date: 20241015
  Transmission Date: 20250115
  Serious: Yes (Hospitalization)
  Sender: JOHNSON AND JOHNSON
  Company Number: BE-JNJFOC-20240913166

PATIENT
  Sex: Male
  Weight: 92 kg

DRUGS (19)
  1. EPOPROSTENOL SODIUM [Suspect]
     Active Substance: EPOPROSTENOL SODIUM
     Indication: Pulmonary arterial hypertension
     Dosage: DAILY DOSE 2
     Route: 042
     Dates: start: 20221227, end: 20221229
  2. EPOPROSTENOL SODIUM [Suspect]
     Active Substance: EPOPROSTENOL SODIUM
     Indication: Pulmonary arterial hypertension
     Dosage: DAILY DOSE 4
     Route: 042
     Dates: start: 20221229, end: 20221230
  3. EPOPROSTENOL SODIUM [Suspect]
     Active Substance: EPOPROSTENOL SODIUM
     Dosage: DAILY DOSE 5
     Route: 042
     Dates: start: 20221230, end: 20230104
  4. EPOPROSTENOL SODIUM [Suspect]
     Active Substance: EPOPROSTENOL SODIUM
     Dosage: DAILY DOSE 8
     Route: 042
     Dates: start: 20230104, end: 20230118
  5. EPOPROSTENOL SODIUM [Suspect]
     Active Substance: EPOPROSTENOL SODIUM
     Dosage: DAILY DOSE 9
     Route: 042
     Dates: start: 20230118, end: 20230125
  6. EPOPROSTENOL SODIUM [Suspect]
     Active Substance: EPOPROSTENOL SODIUM
     Dosage: DAILY DOSE 8.5
     Route: 042
     Dates: start: 20230125, end: 20230416
  7. EPOPROSTENOL SODIUM [Suspect]
     Active Substance: EPOPROSTENOL SODIUM
     Dosage: DAILY DOSE 9
     Route: 042
     Dates: start: 20230416, end: 20230426
  8. EPOPROSTENOL SODIUM [Suspect]
     Active Substance: EPOPROSTENOL SODIUM
     Dosage: DAILY DOSE 9.5
     Route: 042
     Dates: start: 20230426, end: 20230502
  9. EPOPROSTENOL SODIUM [Suspect]
     Active Substance: EPOPROSTENOL SODIUM
     Dosage: DAILY DOSE 9.5
     Route: 042
     Dates: start: 20230426, end: 20230502
  10. EPOPROSTENOL SODIUM [Suspect]
     Active Substance: EPOPROSTENOL SODIUM
     Dosage: DAILY DOSE 10
     Route: 042
     Dates: start: 20230502, end: 20230523
  11. EPOPROSTENOL SODIUM [Suspect]
     Active Substance: EPOPROSTENOL SODIUM
     Dosage: DAILY DOSE 10.5
     Route: 042
     Dates: start: 20230523, end: 20230613
  12. EPOPROSTENOL SODIUM [Suspect]
     Active Substance: EPOPROSTENOL SODIUM
     Dosage: DAILY DOSE 10.5
     Route: 042
     Dates: start: 20230627
  13. EPOPROSTENOL SODIUM [Suspect]
     Active Substance: EPOPROSTENOL SODIUM
     Dosage: DAILY DOSE 11
     Route: 042
     Dates: start: 20230613, end: 20230627
  14. MACITENTAN [Suspect]
     Active Substance: MACITENTAN
     Indication: Pulmonary arterial hypertension
     Route: 048
     Dates: start: 20221230
  15. ADEMPAS [Concomitant]
     Active Substance: RIOCIGUAT
     Indication: Pulmonary arterial hypertension
     Dosage: DAILY DOSE 3
     Route: 048
     Dates: start: 20230215, end: 20230228
  16. ADEMPAS [Concomitant]
     Active Substance: RIOCIGUAT
     Indication: Pulmonary arterial hypertension
     Dosage: DAILY DOSE 4.5
     Route: 048
     Dates: start: 20230228, end: 20230315
  17. ADEMPAS [Concomitant]
     Active Substance: RIOCIGUAT
     Dosage: DAILY DOSE 6
     Route: 048
     Dates: start: 20230315, end: 20230328
  18. ADEMPAS [Concomitant]
     Active Substance: RIOCIGUAT
     Dosage: DAILY DOSE 7.5
     Route: 048
     Dates: start: 20230328
  19. ADCIRCA [Concomitant]
     Active Substance: TADALAFIL
     Indication: Pulmonary arterial hypertension
     Dosage: 20 DOSE
     Route: 048
     Dates: start: 20230201, end: 20230206

REACTIONS (2)
  - Device occlusion [Recovered/Resolved]
  - Underdose [Unknown]

NARRATIVE: CASE EVENT DATE: 20240823
